FAERS Safety Report 5218127-3 (Version None)
Quarter: 2007Q1

REPORT INFORMATION
  Report Type: 
  Country: None (occurrence: None)
  Receive Date: 20070124
  Receipt Date: 20061227
  Transmission Date: 20070707
  Serious: Yes (Hospitalization, Other)
  Sender: FDA-Public Use
  Company Number: US-PFIZER INC-2007001426

PATIENT
  Sex: Male
  Weight: 120.2 kg

DRUGS (2)
  1. BEXTRA [Suspect]
     Indication: ARTHRALGIA
     Route: 048
  2. BEXTRA [Suspect]

REACTIONS (8)
  - ANXIETY [None]
  - CEREBROVASCULAR ACCIDENT [None]
  - DEPRESSION [None]
  - HEMIPLEGIA [None]
  - JOINT RANGE OF MOTION DECREASED [None]
  - MYOCARDIAL INFARCTION [None]
  - SPEECH DISORDER [None]
  - VISION BLURRED [None]
